FAERS Safety Report 4405360-3 (Version None)
Quarter: 2004Q3

REPORT INFORMATION
  Report Type: 
  Country: None (occurrence: None)
  Receive Date: 20040716
  Receipt Date: 20040706
  Transmission Date: 20050211
  Serious: Yes (Other)
  Sender: FDA-Public Use
  Company Number: 2004036228

PATIENT
  Age: 77 Year
  Sex: Male

DRUGS (6)
  1. LIPITOR [Suspect]
     Indication: HYPERLIPIDAEMIA
     Dosage: 5 MG 1 IN 1 D, ORAL
     Route: 048
     Dates: start: 20030730, end: 20040518
  2. CANDESARTAN CILEXETIL        (CANDESARTAN CILEXETIL) [Concomitant]
  3. AMLODIPINE BESYLATE [Concomitant]
  4. TAMSULOSIN HYDROCHLORIDE                  (TAMSULOSIN HYDROCHLORIDE) [Concomitant]
  5. ECABET MONOSODIUM                 (ECABET MONOSODIUM) [Concomitant]
  6. RANITIDINE HYDROCHLORIDE [Concomitant]

REACTIONS (2)
  - HEPATIC STEATOSIS [None]
  - RHABDOMYOLYSIS [None]
